FAERS Safety Report 5402707-6 (Version None)
Quarter: 2007Q3

REPORT INFORMATION
  Report Type: 
  Country: None (occurrence: None)
  Receive Date: 20070801
  Receipt Date: 20070724
  Transmission Date: 20080115
  Serious: Yes (Other)
  Sender: FDA-Public Use
  Company Number: B0481493A

PATIENT
  Age: 8 Year

DRUGS (1)
  1. TIMENTIN [Suspect]
     Indication: PROPHYLAXIS
     Route: 065
     Dates: start: 20070701, end: 20070701

REACTIONS (1)
  - PSYCHOTIC DISORDER [None]
